FAERS Safety Report 9188552 (Version 2)
Quarter: 2013Q2

REPORT INFORMATION
  Report Type: Spontaneous
  Country: US (occurrence: US)
  Receive Date: 20130325
  Receipt Date: 20130415
  Transmission Date: 20140414
  Serious: No
  Sender: FDA-Public Use
  Company Number: US-PFIZER INC-2013092378

PATIENT
  Age: 80 Year
  Sex: Female
  Weight: 74.38 kg

DRUGS (1)
  1. PANTOPRAZOLE [Suspect]
     Indication: GASTRIC DISORDER
     Dosage: 40 MG, 1X/DAY
     Route: 048
     Dates: start: 200909, end: 2009

REACTIONS (5)
  - Drug ineffective [Unknown]
  - Malaise [Unknown]
  - Vomiting [Unknown]
  - Abdominal pain [Unknown]
  - Abdominal pain upper [Unknown]
